FAERS Safety Report 24010225 (Version 2)
Quarter: 2024Q3

REPORT INFORMATION
  Report Type: Spontaneous
  Country: GE (occurrence: GE)
  Receive Date: 20240625
  Receipt Date: 20240711
  Transmission Date: 20241016
  Serious: Yes (Death)
  Sender: ROCHE
  Company Number: GE-ROCHE-10000002179

PATIENT
  Age: 51 Year
  Sex: Male

DRUGS (1)
  1. TECENTRIQ [Suspect]
     Active Substance: ATEZOLIZUMAB
     Indication: Non-small cell lung cancer metastatic
     Route: 042
     Dates: start: 20210819

REACTIONS (3)
  - Disease progression [Fatal]
  - Metastases to central nervous system [Fatal]
  - Cardiac hypertrophy [Fatal]

NARRATIVE: CASE EVENT DATE: 20230222
